FAERS Safety Report 11480251 (Version 1)
Quarter: 2015Q3

REPORT INFORMATION
  Report Type: Spontaneous
  Country: US (occurrence: US)
  Receive Date: 20150909
  Receipt Date: 20150909
  Transmission Date: 20151125
  Serious: Yes (Other)
  Sender: FDA-Public Use
  Company Number: US-LUNDBECK-DKLU2003674

PATIENT
  Sex: Male

DRUGS (5)
  1. SABRIL [Suspect]
     Active Substance: VIGABATRIN
     Route: 065
     Dates: start: 20100826
  2. SABRIL [Suspect]
     Active Substance: VIGABATRIN
     Route: 065
  3. SABRIL [Suspect]
     Active Substance: VIGABATRIN
     Route: 065
  4. SABRIL [Suspect]
     Active Substance: VIGABATRIN
     Indication: COMPLEX PARTIAL SEIZURES
     Route: 065
     Dates: start: 20100826
  5. SABRIL [Suspect]
     Active Substance: VIGABATRIN
     Route: 065

REACTIONS (1)
  - Drug withdrawal convulsions [Unknown]
